FAERS Safety Report 8556869-2 (Version None)
Quarter: 2012Q3

REPORT INFORMATION
  Report Type: 
  Country: None (occurrence: None)
  Receive Date: 20120801
  Receipt Date: 20120727
  Transmission Date: 20120928
  Serious: Yes (Hospitalization, Other)
  Sender: FDA-Public Use
  Company Number: US-BAYER-2012-056075

PATIENT
  Age: 58 Year
  Sex: Male

DRUGS (24)
  1. KOGENATE FS [Suspect]
     Dosage: 10230 U
     Dates: start: 20111113
  2. KOGENATE FS [Suspect]
     Dosage: 7161 U
     Dates: start: 20111116
  3. KOGENATE FS [Suspect]
     Dosage: 7161 U
     Dates: start: 20111117
  4. KOGENATE FS [Suspect]
     Dosage: 10230 U
     Dates: start: 20111115
  5. KOGENATE FS [Suspect]
     Dosage: 2600 U
     Dates: start: 20111111
  6. KOGENATE FS [Suspect]
     Dosage: 14322 U
     Dates: start: 20111112
  7. KOGENATE FS [Suspect]
     Dosage: 2600 U
     Dates: start: 20111112
  8. KOGENATE FS [Suspect]
     Dosage: UNK
     Dates: start: 20110401, end: 20110801
  9. KOGENATE FS [Suspect]
     Dosage: 14322 U
     Dates: start: 20111111
  10. KOGENATE FS [Suspect]
     Dosage: 10230 U
     Dates: start: 20111115
  11. KOGENATE FS [Suspect]
     Dosage: 7161 U
     Dates: start: 20111118
  12. KOGENATE FS [Suspect]
     Dosage: 7161 U
     Dates: start: 20111119
  13. KOGENATE FS [Suspect]
     Indication: FACTOR VIII DEFICIENCY
     Dosage: ON DEMAND USE
     Dates: start: 20100101
  14. KOGENATE FS [Suspect]
     Dosage: 7161 U
     Dates: start: 20111117
  15. KOGENATE FS [Suspect]
     Dosage: 7161 U
     Dates: start: 20111120
  16. KOGENATE FS [Suspect]
     Dosage: 7161 U
     Dates: start: 20111118
  17. KOGENATE FS [Suspect]
     Dosage: 7161 U
     Dates: start: 20111118
  18. KOGENATE FS [Suspect]
     Dosage: 7161 U
     Dates: start: 20111120
  19. KOGENATE FS [Suspect]
     Indication: HAEMOPHILIA
     Dosage: CONTINUOUS INFUSION
     Dates: start: 20110101, end: 20110101
  20. KOGENATE FS [Suspect]
     Dosage: PROPHYLAXIS
     Dates: start: 20110101
  21. KOGENATE FS [Suspect]
     Dosage: UNK
     Dates: start: 20081201, end: 20101201
  22. KOGENATE FS [Suspect]
     Dosage: UNK
     Dates: start: 20110401
  23. KOGENATE FS [Suspect]
     Dosage: 10230 U
     Dates: start: 20111114
  24. KOGENATE FS [Suspect]
     Dosage: 7161 U
     Dates: start: 20111118

REACTIONS (2)
  - HAEMORRHAGE [None]
  - ANTI FACTOR VIII ANTIBODY POSITIVE [None]
